FAERS Safety Report 19715557 (Version 3)
Quarter: 2021Q3

REPORT INFORMATION
  Report Type: Report from Study
  Country: IT (occurrence: IT)
  Receive Date: 20210818
  Receipt Date: 20210929
  Transmission Date: 20211014
  Serious: Yes (Hospitalization)
  Sender: FDA-Public Use
  Company Number: IT-ROCHE-2887528

PATIENT
  Age: 66 Year
  Sex: Male
  Weight: 78 kg

DRUGS (13)
  1. GLOFITAMAB. [Suspect]
     Active Substance: GLOFITAMAB
     Indication: NON-HODGKIN^S LYMPHOMA
     Dosage: ON 29/JUL/2021, AT 09:44 AM, RECEIVED THE MOST RECENT DOSE OF GLOFITAMAB (RO7082859)?DAY 1 AND DAY 8
     Route: 042
     Dates: start: 20210625
  2. DEXAMETHASONE. [Concomitant]
     Active Substance: DEXAMETHASONE
     Dates: start: 20210708, end: 20210708
  3. PARACETAMOL [Concomitant]
     Active Substance: ACETAMINOPHEN
     Indication: PREMEDICATION
     Dates: start: 20210708, end: 20210708
  4. BACTRIM [Concomitant]
     Active Substance: SULFAMETHOXAZOLE\TRIMETHOPRIM
  5. LANSOPRAZOLE. [Concomitant]
     Active Substance: LANSOPRAZOLE
  6. DEXAMETHASONE. [Concomitant]
     Active Substance: DEXAMETHASONE
     Dates: start: 20210730, end: 20210730
  7. ACICLOVIR [Concomitant]
     Active Substance: ACYCLOVIR
  8. PARACETAMOL [Concomitant]
     Active Substance: ACETAMINOPHEN
     Dates: start: 20210730, end: 20210730
  9. ALLOPURINOL. [Concomitant]
     Active Substance: ALLOPURINOL
  10. OBINUTUZUMAB. [Suspect]
     Active Substance: OBINUTUZUMAB
     Indication: NON-HODGKIN^S LYMPHOMA
     Dosage: ON 18/JUN/2021 AT 8:56 AM, RECEIVED THE MOST RECENT DOSE OF OBINUTUZUMAB PRIOR TO SERIOUS ADVERSE EV
     Route: 042
     Dates: start: 20210618
  11. ZOLPIDEM [Concomitant]
     Active Substance: ZOLPIDEM TARTRATE
     Indication: HYPERTENSION
  12. CHLORPHENAMINE [Concomitant]
     Active Substance: CHLORPHENIRAMINE MALEATE
     Indication: PREMEDICATION
     Dates: start: 20210708, end: 20210708
  13. CHLORPHENAMINE [Concomitant]
     Active Substance: CHLORPHENIRAMINE MALEATE
     Dates: start: 20210730, end: 20210730

REACTIONS (1)
  - Transient ischaemic attack [Recovered/Resolved]

NARRATIVE: CASE EVENT DATE: 20210804
